FAERS Safety Report 22276915 (Version 1)
Quarter: 2023Q2

REPORT INFORMATION
  Report Type: Spontaneous
  Country: MX (occurrence: MX)
  Receive Date: 20230503
  Receipt Date: 20230503
  Transmission Date: 20230721
  Serious: Yes (Death, Hospitalization)
  Sender: FDA-Public Use
  Company Number: MX-APOTEX-2023AP007754

PATIENT
  Age: 20 Year
  Sex: Female

DRUGS (4)
  1. ALPRAZOLAM [Interacting]
     Active Substance: ALPRAZOLAM
     Indication: Depression
     Dosage: UNK
     Route: 065
  2. AMITRIPTYLINE [Interacting]
     Active Substance: AMITRIPTYLINE
     Indication: Depression
     Dosage: UNK
     Route: 048
  3. CLOZAPINE [Interacting]
     Active Substance: CLOZAPINE
     Indication: Depression
     Dosage: UNK
     Route: 065
  4. DIETARY SUPPLEMENT\HERBALS [Interacting]
     Active Substance: DIETARY SUPPLEMENT\HERBALS
     Indication: Product used for unknown indication
     Dosage: UNK
     Route: 065

REACTIONS (1)
  - Drug interaction [Fatal]
